FAERS Safety Report 24132998 (Version 2)
Quarter: 2024Q3

REPORT INFORMATION
  Report Type: Report from Study
  Country: US (occurrence: US)
  Receive Date: 20240724
  Receipt Date: 20240816
  Transmission Date: 20241016
  Serious: Yes (Other)
  Sender: UCB
  Company Number: US-UCBSA-2024037154

PATIENT
  Sex: Female

DRUGS (2)
  1. BIMEKIZUMAB [Suspect]
     Active Substance: BIMEKIZUMAB
     Indication: Psoriasis
     Dosage: 320 MILLIGRAM, EV 4 WEEKS
     Route: 058
     Dates: start: 20240610, end: 20240708
  2. BIMEKIZUMAB [Suspect]
     Active Substance: BIMEKIZUMAB
     Dosage: 320 MILLIGRAM, EV 4 WEEKS
     Route: 058
     Dates: start: 2024, end: 2024

REACTIONS (3)
  - Colitis ulcerative [Not Recovered/Not Resolved]
  - Crohn^s disease [Not Recovered/Not Resolved]
  - Drug hypersensitivity [Unknown]

NARRATIVE: CASE EVENT DATE: 20240101
